FAERS Safety Report 10370480 (Version 1)
Quarter: 2014Q3

REPORT INFORMATION
  Report Type: Spontaneous
  Country: FR (occurrence: FR)
  Receive Date: 20140808
  Receipt Date: 20140808
  Transmission Date: 20150326
  Serious: Yes (Other)
  Sender: FDA-Public Use
  Company Number: FR-RANBAXY-2014RR-84148

PATIENT
  Age: 60 Year
  Sex: Female

DRUGS (3)
  1. SULPIRIDE [Interacting]
     Active Substance: SULPIRIDE
     Indication: AFFECTIVE DISORDER
     Dosage: 200 MG, BID
     Route: 065
     Dates: start: 200909
  2. FLUOXETINE [Suspect]
     Active Substance: FLUOXETINE\FLUOXETINE HYDROCHLORIDE
     Indication: AFFECTIVE DISORDER
     Dosage: 20 MG, BID
     Route: 065
     Dates: start: 200909
  3. AGOMELATINE [Interacting]
     Active Substance: AGOMELATINE
     Indication: AFFECTIVE DISORDER
     Dosage: 25 MG, DAILY
     Route: 065
     Dates: start: 201201

REACTIONS (6)
  - Drug interaction [Recovered/Resolved]
  - Nervousness [Recovered/Resolved]
  - Insomnia [Recovered/Resolved]
  - Drug ineffective [Recovered/Resolved]
  - Chest pain [Recovered/Resolved]
  - Tachycardia [Recovered/Resolved]
